FAERS Safety Report 5067663-1 (Version None)
Quarter: 2006Q3

REPORT INFORMATION
  Report Type: 
  Country: None (occurrence: None)
  Receive Date: 20060713
  Receipt Date: 20060111
  Transmission Date: 20061208
  Serious: Yes (Death)
  Sender: FDA-Public Use
  Company Number: 05P-163-0318383-00

PATIENT
  Sex: Female
  Weight: 93.441 kg

DRUGS (10)
  1. POTASSIUM CHLORIDE [Suspect]
     Indication: HYPOKALAEMIA
     Dosage: 10 MEQ, 4 IN 1 D
  2. METFORMIN HCL [Concomitant]
  3. PROPRANOLOL HYDROCHLORIDE [Concomitant]
  4. POTASSIUM [Concomitant]
  5. MODURETIC 5-50 [Concomitant]
  6. CALCIUM +D [Concomitant]
  7. GLIMEPIRIDE [Concomitant]
  8. AMITRIPTYLINE HYDROCHLORIDE [Concomitant]
  9. ACETAMINOPHEN W/ CODEINE [Concomitant]
  10. IBUPROFEN [Concomitant]

REACTIONS (1)
  - DEATH [None]
